FAERS Safety Report 6554461-2 (Version None)
Quarter: 2010Q1

REPORT INFORMATION
  Report Type: 
  Country: None (occurrence: None)
  Receive Date: 20100127
  Receipt Date: 20100116
  Transmission Date: 20100710
  Serious: Yes (Death, Other)
  Sender: FDA-Public Use
  Company Number: US-BAXTER-2010BH001544

PATIENT
  Sex: Male

DRUGS (3)
  1. HEPARIN SODIUM INJECTION [Suspect]
     Indication: DRUG USE FOR UNKNOWN INDICATION
     Route: 065
     Dates: start: 20071001
  2. PRE-FILLED SALINE FLUSH SYRINGE [Suspect]
     Indication: DRUG USE FOR UNKNOWN INDICATION
     Route: 065
     Dates: start: 20071001
  3. PRE-FILLED SALINE FLUSH SYRINGE [Suspect]
     Route: 065
     Dates: start: 20071201

REACTIONS (3)
  - DEATH [None]
  - SEPSIS SYNDROME [None]
  - SERRATIA INFECTION [None]
